FAERS Safety Report 6455803-9 (Version None)
Quarter: 2009Q4

REPORT INFORMATION
  Report Type: 
  Country: None (occurrence: None)
  Receive Date: 20091125
  Receipt Date: 20091019
  Transmission Date: 20100525
  Serious: No
  Sender: FDA-Public Use
  Company Number: US-ABBOTT-09P-163-0595015-00

PATIENT
  Sex: Female
  Weight: 106.24 kg

DRUGS (20)
  1. SIMCOR [Suspect]
     Indication: LOW DENSITY LIPOPROTEIN INCREASED
     Dosage: 500/20 MILLIGRAMS
     Route: 048
     Dates: start: 20090825, end: 20090827
  2. SIMCOR [Suspect]
     Indication: BLOOD TRIGLYCERIDES INCREASED
  3. NIASPAN [Suspect]
     Indication: LOW DENSITY LIPOPROTEIN INCREASED
     Route: 048
     Dates: start: 20090828
  4. NIASPAN [Suspect]
     Indication: BLOOD TRIGLYCERIDES INCREASED
  5. SIMVASTATIN [Suspect]
     Indication: LOW DENSITY LIPOPROTEIN INCREASED
     Dates: start: 20090828
  6. SIMVASTATIN [Suspect]
     Indication: BLOOD TRIGLYCERIDES INCREASED
  7. LISINOPRIL [Concomitant]
     Indication: HYPERTENSION
     Route: 048
  8. METOPROLOL TARTRATE [Concomitant]
     Indication: HYPERTENSION
     Route: 048
  9. GLUCOPHAGE [Concomitant]
     Indication: DIABETES MELLITUS
     Route: 048
  10. ACTOS [Concomitant]
     Indication: DIABETES MELLITUS
     Route: 048
  11. LANTUS [Concomitant]
     Indication: DIABETES MELLITUS
     Route: 058
  12. HUMALOG [Concomitant]
     Indication: DIABETES MELLITUS
     Dosage: 6-8 UNITS WITH MEALS
  13. LEXAPRO [Concomitant]
     Indication: DEPRESSION
     Route: 048
  14. LEXAPRO [Concomitant]
     Indication: ANXIETY
  15. CLONAZEPAM [Concomitant]
     Indication: DEPRESSION
     Route: 048
  16. CLONAZEPAM [Concomitant]
     Indication: ANXIETY
  17. FEXOFENADINE [Concomitant]
     Indication: SEASONAL ALLERGY
     Route: 048
  18. LAMISIL [Concomitant]
     Indication: ONYCHOMYCOSIS
     Route: 048
     Dates: start: 20090801
  19. PROVIGIL [Concomitant]
     Indication: NARCOLEPSY
     Dosage: 200MG QD, 100MG IN AFTERNOON
     Route: 048
  20. SYNTHROID [Concomitant]
     Indication: HYPOTHYROIDISM
     Route: 048

REACTIONS (2)
  - BLOOD GLUCOSE INCREASED [None]
  - FLUSHING [None]
